FAERS Safety Report 11008410 (Version 1)
Quarter: 2015Q2

REPORT INFORMATION
  Report Type: Spontaneous
  Country: US (occurrence: US)
  Receive Date: 20150410
  Receipt Date: 20150410
  Transmission Date: 20150821
  Serious: No
  Sender: FDA-Public Use
  Company Number: US-BIOGENIDEC-2015BI042296

PATIENT
  Age: 59 Year
  Sex: Female

DRUGS (2)
  1. TECFIDERA [Suspect]
     Active Substance: DIMETHYL FUMARATE
     Indication: MULTIPLE SCLEROSIS
     Route: 048
  2. ADVIL [Concomitant]
     Active Substance: IBUPROFEN

REACTIONS (3)
  - Loss of control of legs [Unknown]
  - Nasopharyngitis [Unknown]
  - General symptom [Unknown]

NARRATIVE: CASE EVENT DATE: 20150324
